FAERS Safety Report 7128351-0 (Version None)
Quarter: 2010Q4

REPORT INFORMATION
  Report Type: 
  Country: None (occurrence: None)
  Receive Date: 20101130
  Receipt Date: 20101123
  Transmission Date: 20110411
  Serious: Yes (Death)
  Sender: FDA-Public Use
  Company Number: VE-PFIZER INC-2010144262

PATIENT
  Age: 74 Year
  Sex: Male

DRUGS (2)
  1. ZOLOFT [Suspect]
     Indication: DEPRESSION
     Dosage: 50 MG, 1X/DAY
     Route: 048
  2. PLAVIX [Concomitant]
     Dosage: 75 MG, 1X/DAY
     Route: 048

REACTIONS (1)
  - RESPIRATORY ARREST [None]
